FAERS Safety Report 5478131-7 (Version None)
Quarter: 2007Q4

REPORT INFORMATION
  Report Type: 
  Country: None (occurrence: None)
  Receive Date: 20071005
  Receipt Date: 20061103
  Transmission Date: 20080405
  Serious: No
  Sender: FDA-Public Use
  Company Number: US-BRISTOL-MYERS SQUIBB COMPANY-13565973

PATIENT
  Age: 58 Year
  Sex: Male
  Weight: 83 kg

DRUGS (3)
  1. AVAPRO [Suspect]
     Indication: HYPERTENSION
     Dates: start: 20050501
  2. LIPITOR [Concomitant]
  3. AMOXICILLIN [Concomitant]
     Dates: start: 20061001

REACTIONS (1)
  - ANOSMIA [None]
